FAERS Safety Report 25984126 (Version 2)
Quarter: 2025Q4

REPORT INFORMATION
  Report Type: Report from Study
  Country: CL (occurrence: CL)
  Receive Date: 20251031
  Receipt Date: 20251216
  Transmission Date: 20260118
  Serious: Yes (Hospitalization, Other)
  Sender: JOHNSON AND JOHNSON
  Company Number: CL-JNJFOC-20251031911

PATIENT
  Age: 34 Year
  Sex: Female

DRUGS (2)
  1. SIMPONI [Suspect]
     Active Substance: GOLIMUMAB
     Indication: Colitis ulcerative
     Route: 058
  2. MESALAMINE [Concomitant]
     Active Substance: MESALAMINE
     Indication: Product used for unknown indication

REACTIONS (5)
  - Premature labour [Recovered/Resolved]
  - Gestational diabetes [Unknown]
  - Listeriosis [Unknown]
  - Exposure during pregnancy [Recovered/Resolved]
  - Lactation insufficiency [Unknown]

NARRATIVE: CASE EVENT DATE: 20251016
